FAERS Safety Report 7469598-3 (Version None)
Quarter: 2011Q2

REPORT INFORMATION
  Report Type: 
  Country: None (occurrence: None)
  Receive Date: 20110510
  Receipt Date: 20090306
  Transmission Date: 20111010
  Serious: Yes (Hospitalization, Other)
  Sender: FDA-Public Use
  Company Number: US-BAYER-2011-010212

PATIENT
  Age: 60 Year
  Sex: Female
  Weight: 61 kg

DRUGS (12)
  1. PLAVIX [Concomitant]
     Dosage: UNK
     Route: 048
     Dates: start: 20020101
  2. PROTAMINE [Concomitant]
     Dosage: UNK
     Route: 042
     Dates: start: 20031114
  3. CEFAZOLIN [Concomitant]
     Dosage: 1 G, UNK
     Route: 042
     Dates: start: 20031114
  4. PRECEDEX [Concomitant]
     Dosage: UNK
     Route: 042
     Dates: start: 20031114
  5. DOBUTREX [Concomitant]
     Dosage: UNK
     Route: 042
     Dates: start: 20031114
  6. DIOVAN HCT [Concomitant]
     Dosage: 160 MG, UNK
     Route: 048
  7. HEPARIN [Concomitant]
     Dosage: UNK
     Route: 042
     Dates: start: 20031114
  8. TRASYLOL [Suspect]
     Indication: CORONARY ARTERY BYPASS
     Dosage: 1 ML, 200ML, 50ML/HOUR
     Route: 042
     Dates: start: 20031114, end: 20031114
  9. NITROGLYCERIN [Concomitant]
     Dosage: UNK
     Route: 042
     Dates: start: 20031114
  10. ARAMINE [Concomitant]
     Dosage: UNK
     Route: 042
     Dates: start: 20031114
  11. LESCOL XL [Concomitant]
     Dosage: 80 MG, QD
     Route: 048
     Dates: start: 20030101
  12. PAPAVERINE [PAPAVERINE] [Concomitant]
     Dosage: UNK
     Route: 042
     Dates: start: 20031114

REACTIONS (11)
  - RENAL INJURY [None]
  - EMOTIONAL DISTRESS [None]
  - RENAL IMPAIRMENT [None]
  - PAIN [None]
  - MULTI-ORGAN FAILURE [None]
  - RENAL FAILURE [None]
  - STRESS [None]
  - FEAR [None]
  - UNEVALUABLE EVENT [None]
  - MYOCARDIAL INFARCTION [None]
  - ANXIETY [None]
